FAERS Safety Report 4715580-6 (Version None)
Quarter: 2005Q3

REPORT INFORMATION
  Report Type: 
  Country: None (occurrence: None)
  Receive Date: 20050715
  Receipt Date: 20050715
  Transmission Date: 20060218
  Serious: Yes (Other)
  Sender: FDA-Public Use
  Company Number: None

PATIENT
  Sex: Female
  Weight: 59.4 kg

DRUGS (4)
  1. TEMODAR [Suspect]
     Indication: GLIOBLASTOMA MULTIFORME
     Dosage: SEE IMAGE
     Dates: start: 20050606
  2. RADIATION [Suspect]
     Dosage: QD X 6 WEEKS
  3. DEXAMETHASONE [Concomitant]
  4. AEROSOLIZED PENTAMIDINE [Concomitant]

REACTIONS (7)
  - ARTERIAL OCCLUSIVE DISEASE [None]
  - CYANOSIS [None]
  - HYPERAESTHESIA [None]
  - ISCHAEMIA [None]
  - LEG AMPUTATION [None]
  - PAIN IN EXTREMITY [None]
  - SKIN DISCOLOURATION [None]
